FAERS Safety Report 11620627 (Version 1)
Quarter: 2015Q4

REPORT INFORMATION
  Report Type: Spontaneous
  Country: IN (occurrence: IN)
  Receive Date: 20151012
  Receipt Date: 20151012
  Transmission Date: 20160304
  Serious: Yes (Hospitalization)
  Sender: FDA-Public Use
  Company Number: IN-MYLANLABS-2015M1034106

PATIENT

DRUGS (3)
  1. PHENYTOIN. [Suspect]
     Active Substance: PHENYTOIN
     Indication: GENERALISED TONIC-CLONIC SEIZURE
     Dosage: 200 MG, QD
     Route: 048
  2. FOLIC ACID. [Concomitant]
     Active Substance: FOLIC ACID
     Indication: PRODUCT USED FOR UNKNOWN INDICATION
     Dosage: 50 MG, QD
     Route: 065
  3. PHENYTOIN. [Suspect]
     Active Substance: PHENYTOIN
     Dosage: 100 MG, QD
     Route: 048

REACTIONS (11)
  - Toxicity to various agents [Unknown]
  - Visual acuity reduced [Unknown]
  - Vomiting [Recovered/Resolved]
  - Dizziness [Unknown]
  - Gingival hypertrophy [Recovering/Resolving]
  - Nystagmus [Recovered/Resolved]
  - Hirsutism [Recovering/Resolving]
  - Skin lesion [Recovered/Resolved]
  - Asthenia [Unknown]
  - Ataxia [Recovered/Resolved]
  - Muscular weakness [Unknown]
